FAERS Safety Report 5759808-2 (Version None)
Quarter: 2008Q2

REPORT INFORMATION
  Report Type: 
  Country: None (occurrence: None)
  Receive Date: 20080605
  Receipt Date: 20080530
  Transmission Date: 20081010
  Serious: Yes (Disabling)
  Sender: FDA-Public Use
  Company Number: NL-ASTRAZENECA-2008AC01392

PATIENT
  Age: 77 Year
  Sex: Female

DRUGS (14)
  1. LOSEC I.V. [Suspect]
     Route: 048
  2. COAPROVEL [Concomitant]
     Dosage: 150/12.5MG 1 TABLET ONCE A DAY
  3. AMLODIPINE [Concomitant]
  4. METOPROLOLTARTRAAT [Concomitant]
  5. SIMVASTATIN [Concomitant]
  6. AMITRIPTYLINE HCL [Concomitant]
  7. TRAMADOL HCL [Concomitant]
     Dosage: 50MG 3 TIMES PER DAY AS REQUIRED
  8. TOLBUTAMIDE [Concomitant]
  9. METFORMINE HCL [Concomitant]
  10. THYRAX DUOTAB [Concomitant]
  11. PREDNISON [Concomitant]
  12. ALENDRONINEZUR [Concomitant]
  13. FUROSEMIDE [Concomitant]
  14. CALCIUM SANDOZ FORTE [Concomitant]

REACTIONS (3)
  - OPTIC NEURITIS [None]
  - VISUAL ACUITY REDUCED [None]
  - VISUAL FIELD DEFECT [None]
